FAERS Safety Report 7156783-3 (Version None)
Quarter: 2010Q4

REPORT INFORMATION
  Report Type: 
  Country: None (occurrence: None)
  Receive Date: 20101214
  Receipt Date: 20101129
  Transmission Date: 20110411
  Serious: No
  Sender: FDA-Public Use
  Company Number: US-PFIZER INC-2010160434

PATIENT
  Age: 89 Year
  Sex: Female
  Weight: 51.71 kg

DRUGS (2)
  1. ADVIL [Suspect]
     Indication: ARTHRALGIA
     Dosage: 2 TABLETS ONCE UNK
     Route: 048
     Dates: start: 20101125, end: 20101125
  2. MULTI-VITAMINS [Concomitant]

REACTIONS (3)
  - DIZZINESS [None]
  - FEAR [None]
  - TREMOR [None]
